FAERS Safety Report 23461198 (Version 1)
Quarter: 2024Q1

REPORT INFORMATION
  Report Type: Spontaneous
  Country: AU (occurrence: AU)
  Receive Date: 20240131
  Receipt Date: 20240131
  Transmission Date: 20240410
  Serious: Yes (Disabling, Other)
  Sender: FDA-Public Use
  Company Number: AU-BAYER-2024A015200

PATIENT
  Age: 80 Year
  Sex: Male

DRUGS (1)
  1. EYLEA [Suspect]
     Active Substance: AFLIBERCEPT
     Indication: Age-related macular degeneration
     Dosage: 0.05 ML, 12 WEEKLY; SOLUTION FOR INJECTION; 40 MG/ML
     Route: 031
     Dates: start: 20240111, end: 20240111

REACTIONS (4)
  - Headache [Recovering/Resolving]
  - Iritis [Recovering/Resolving]
  - Intraocular pressure increased [Recovering/Resolving]
  - Eye pain [Recovering/Resolving]

NARRATIVE: CASE EVENT DATE: 20240111
